FAERS Safety Report 10538956 (Version 2)
Quarter: 2015Q1

REPORT INFORMATION
  Report Type: Spontaneous
  Country: FR (occurrence: FR)
  Receive Date: 20141023
  Receipt Date: 20150130
  Transmission Date: 20150720
  Serious: Yes (Hospitalization, Other)
  Sender: FDA-Public Use
  Company Number: FR-GLAXOSMITHKLINE-FR2014GSK009800

PATIENT
  Age: 79 Year
  Sex: Female

DRUGS (9)
  1. KARDEGIC [Suspect]
     Active Substance: ASPIRIN LYSINE
     Indication: LEFT VENTRICULAR FAILURE
     Dosage: 75 MG, QD
     Route: 048
     Dates: start: 20140618
  2. ERYFLUID [Suspect]
     Active Substance: ERYTHROMYCIN
     Indication: FOLLICULITIS
     Dosage: UNK
     Route: 061
     Dates: start: 20140528
  3. LASILIX FAIBLE [Suspect]
     Active Substance: FUROSEMIDE
     Indication: LEFT VENTRICULAR FAILURE
     Dosage: 20 MG, BID
     Route: 065
     Dates: start: 20140610
  4. AUGMENTIN [Suspect]
     Active Substance: AMOXICILLIN\CLAVULANATE POTASSIUM
     Indication: PRODUCT USED FOR UNKNOWN INDICATION
     Dosage: UNK
     Route: 065
     Dates: start: 20140715, end: 20140718
  5. ARIXTRA [Suspect]
     Active Substance: FONDAPARINUX SODIUM
     Indication: LEFT VENTRICULAR FAILURE
     Dosage: 7.5 MG, QD
     Route: 058
     Dates: start: 20140610
  6. DOXYCYCLINE. [Suspect]
     Active Substance: DOXYCYCLINE
     Indication: FOLLICULITIS
     Dosage: 100 MG, QD
     Route: 048
     Dates: start: 201407, end: 20140804
  7. TARCEVA [Suspect]
     Active Substance: ERLOTINIB HYDROCHLORIDE
     Indication: ADENOCARCINOMA
     Dosage: 150 MG, QD
     Route: 048
     Dates: start: 20140516
  8. CORDARONE [Suspect]
     Active Substance: AMIODARONE HYDROCHLORIDE
     Indication: LEFT VENTRICULAR FAILURE
     Dosage: 200 MG, 5 IN 1 WEEK
     Route: 048
     Dates: start: 20140610
  9. CARDENSIEL [Suspect]
     Active Substance: BISOPROLOL FUMARATE
     Indication: LEFT VENTRICULAR FAILURE
     Dosage: 2.5 MG, BID
     Route: 048
     Dates: start: 20140610

REACTIONS (2)
  - Pancreatitis acute [Recovered/Resolved]
  - Product use issue [Unknown]

NARRATIVE: CASE EVENT DATE: 20140803
